FAERS Safety Report 19973190 (Version 1)
Quarter: 2021Q4

REPORT INFORMATION
  Report Type: Spontaneous
  Country: CA (occurrence: CA)
  Receive Date: 20211020
  Receipt Date: 20211020
  Transmission Date: 20220303
  Serious: Yes (Other)
  Sender: FDA-Public Use
  Company Number: CA-TEVA-2021-CA-1966873

PATIENT
  Age: 67 Year
  Sex: Female

DRUGS (11)
  1. TREANDA [Suspect]
     Active Substance: BENDAMUSTINE HYDROCHLORIDE
     Route: 065
  2. ACETAMINOPHEN [Concomitant]
     Active Substance: ACETAMINOPHEN
  3. APIXABAN [Concomitant]
     Active Substance: APIXABAN
  4. BUPROPION [Concomitant]
     Active Substance: BUPROPION
     Route: 065
  5. CITALOPRAM [Concomitant]
     Active Substance: CITALOPRAM HYDROBROMIDE
  6. DEXAMETHASONE [Concomitant]
     Active Substance: DEXAMETHASONE
     Route: 065
  7. DIMENHYDRINATE [Concomitant]
     Active Substance: DIMENHYDRINATE
  8. GRANISETRON [Concomitant]
     Active Substance: GRANISETRON
  9. RITUXAN [Concomitant]
     Active Substance: RITUXIMAB
  10. ALBUTEROL [Concomitant]
     Active Substance: ALBUTEROL
  11. TRAZODONE [Concomitant]
     Active Substance: TRAZODONE HYDROCHLORIDE

REACTIONS (3)
  - Dyspepsia [Recovered/Resolved]
  - Flushing [Recovered/Resolved]
  - Sensation of foreign body [Recovered/Resolved]
